FAERS Safety Report 7301258-1 (Version None)
Quarter: 2011Q1

REPORT INFORMATION
  Report Type: 
  Country: None (occurrence: None)
  Receive Date: 20110112
  Receipt Date: 20090325
  Transmission Date: 20110831
  Serious: Yes (Other)
  Sender: FDA-Public Use
  Company Number: THYM-1000937

PATIENT
  Age: 43 Year
  Sex: Female
  Weight: 63.6 kg

DRUGS (6)
  1. PROGRAF [Concomitant]
  2. SOLU-MEDROL [Concomitant]
  3. THYMOGLOBULIN [Suspect]
     Indication: TRANSPLANT REJECTION
     Dosage: 100 MG, INTRAVENOUS
     Route: 042
     Dates: start: 20080310, end: 20080312
  4. PREDNISONE TAB [Concomitant]
  5. MYCOPHENOLATE MOFETIL [Concomitant]
  6. MYCOPHENOLIC ACID [Concomitant]

REACTIONS (2)
  - EPSTEIN-BARR VIRUS ASSOCIATED LYMPHOPROLIFERATIVE DISORDER [None]
  - DIFFUSE LARGE B-CELL LYMPHOMA [None]
